FAERS Safety Report 6157106-9 (Version None)
Quarter: 2009Q2

REPORT INFORMATION
  Report Type: 
  Country: None (occurrence: None)
  Receive Date: 20090416
  Receipt Date: 20090414
  Transmission Date: 20091009
  Serious: Yes (Death, Hospitalization)
  Sender: FDA-Public Use
  Company Number: BR-ABBOTT-09P-020-0568072-00

PATIENT
  Age: 51 Year
  Sex: Female

DRUGS (2)
  1. HUMIRA [Suspect]
     Indication: RHEUMATOID ARTHRITIS
     Dosage: TOTAL OF 2 INJECTIONS
     Route: 058
     Dates: start: 20090218, end: 20090301
  2. MODURETIC 5-50 [Concomitant]
     Indication: HYPERTENSION

REACTIONS (3)
  - HEPATITIS FULMINANT [None]
  - PNEUMONIA PRIMARY ATYPICAL [None]
  - SEPSIS [None]
